FAERS Safety Report 8925673 (Version 1)
Quarter: 2012Q4

REPORT INFORMATION
  Report Type: 
  Country: DE (occurrence: DE)
  Receive Date: 20121126
  Receipt Date: 20121126
  Transmission Date: 20130627
  Serious: Yes (Other)
  Sender: FDA-Public Use
  Company Number: DE-ASTRAZENECA-2012SE87477

PATIENT
  Age: 13149 Day
  Sex: Female

DRUGS (2)
  1. SEROQUEL [Suspect]
     Route: 048
     Dates: start: 20120831
  2. SEROQUEL [Suspect]
     Dosage: GENERIC
     Route: 048
     Dates: start: 20120831

REACTIONS (3)
  - Loss of consciousness [Unknown]
  - Electrocardiogram T wave inversion [Unknown]
  - Heart rate irregular [Unknown]
